FAERS Safety Report 8391942-3 (Version None)
Quarter: 2012Q2

REPORT INFORMATION
  Report Type: 
  Country: None (occurrence: None)
  Receive Date: 20120529
  Receipt Date: 20120524
  Transmission Date: 20120825
  Serious: Yes (Other)
  Sender: FDA-Public Use
  Company Number: GB-GLAXOSMITHKLINE-B0803826A

PATIENT
  Age: 31 Year
  Sex: Male

DRUGS (3)
  1. LAMICTAL [Suspect]
     Indication: EPILEPSY
     Dosage: 100MG TWICE PER DAY
     Route: 048
     Dates: start: 20120401
  2. ZOPICLONE [Concomitant]
     Dosage: 7.5MG PER DAY
  3. PSORALENS + ULTRAVIOLET A [Concomitant]
     Indication: PSORIASIS

REACTIONS (4)
  - DEHYDRATION [None]
  - EPILEPSY [None]
  - DRUG INEFFECTIVE [None]
  - PRODUCT QUALITY ISSUE [None]
